FAERS Safety Report 10229960 (Version 1)
Quarter: 2014Q2

REPORT INFORMATION
  Report Type: Spontaneous
  Country: NL (occurrence: NL)
  Receive Date: 20140611
  Receipt Date: 20140611
  Transmission Date: 20141212
  Serious: Yes (Death)
  Sender: FDA-Public Use
  Company Number: NL-AMGEN-NLDSP2014042491

PATIENT
  Age: 76 Year
  Sex: Male

DRUGS (1)
  1. NEULASTA [Suspect]
     Indication: PROPHYLAXIS
     Dosage: 10 MG/ML, EVERY 2 WEEKS
     Route: 058
     Dates: start: 20131102, end: 20140605

REACTIONS (1)
  - Death [Fatal]
